FAERS Safety Report 16071241 (Version 3)
Quarter: 2021Q4

REPORT INFORMATION
  Report Type: Spontaneous
  Country: US (occurrence: US)
  Receive Date: 20190314
  Receipt Date: 20211130
  Transmission Date: 20220303
  Serious: No
  Sender: FDA-Public Use
  Company Number: US-PFIZER INC-2017125142

PATIENT
  Age: 9 Year
  Sex: Male
  Weight: 29 kg

DRUGS (4)
  1. GENOTROPIN [Suspect]
     Active Substance: SOMATROPIN
     Indication: Hypochondroplasia
     Dosage: 9 MG, WEEKLY (1.5 MG FOR 6 DAYS PER WEEK, 1 DAY OFF)
     Dates: start: 20160314
  2. GENOTROPIN [Suspect]
     Active Substance: SOMATROPIN
     Indication: Dwarfism
     Dosage: 2.2 MG, CYCLIC (ONCE FOR 6 DAYS A WEEK)
  3. GENOTROPIN [Suspect]
     Active Substance: SOMATROPIN
     Dosage: 3.6 MG
     Dates: start: 2017
  4. ANASTROZOLE [Concomitant]
     Active Substance: ANASTROZOLE
     Indication: Growth failure
     Dosage: 1 MG, DAILY
     Route: 048

REACTIONS (7)
  - Product use in unapproved indication [Unknown]
  - Drug ineffective for unapproved indication [Unknown]
  - Drug dose omission by device [Unknown]
  - Device breakage [Unknown]
  - Expired device used [Unknown]
  - Device information output issue [Unknown]
  - Device use issue [Unknown]

NARRATIVE: CASE EVENT DATE: 20160314
